FAERS Safety Report 7214448-3 (Version None)
Quarter: 2011Q1

REPORT INFORMATION
  Report Type: 
  Country: None (occurrence: None)
  Receive Date: 20110107
  Receipt Date: 20101228
  Transmission Date: 20110831
  Serious: Yes (Hospitalization)
  Sender: FDA-Public Use
  Company Number: FR-NOVOPROD-320809

PATIENT
  Age: 83 Year
  Sex: Male

DRUGS (8)
  1. SIMVASTATIN [Concomitant]
  2. EUPANTOL [Concomitant]
  3. KARDEGIC [Concomitant]
  4. CORDARONE [Concomitant]
  5. BUMEX [Concomitant]
  6. PREVISCAN                          /00261401/ [Concomitant]
  7. NOVONORM [Suspect]
     Indication: PRODUCT USED FOR UNKNOWN INDICATION
     Dosage: 2 MG
     Route: 065
  8. LASIX [Concomitant]

REACTIONS (1)
  - HYPOGLYCAEMIC COMA [None]
